FAERS Safety Report 9578451 (Version 1)
Quarter: 2013Q4

REPORT INFORMATION
  Report Type: Spontaneous
  Country: US (occurrence: US)
  Receive Date: 20131001
  Receipt Date: 20131001
  Transmission Date: 20140711
  Serious: No
  Sender: FDA-Public Use
  Company Number: US-AMGEN-USASP2013012712

PATIENT
  Sex: Male

DRUGS (7)
  1. ENBREL [Suspect]
     Indication: ANKYLOSING SPONDYLITIS
     Dosage: 50 MG, QWK
     Route: 058
  2. SULFASALAZIN [Concomitant]
     Dosage: 500 MG, UNK
  3. IBUPROFEN [Concomitant]
     Dosage: 200 MG, UNK
  4. ZYRTEC ALLERGY [Concomitant]
     Dosage: 10 MG, UNK
  5. CHANTIX [Concomitant]
     Dosage: 0.5 MG, UNK
  6. MULTIVITAMINS, PLAIN [Concomitant]
     Dosage: UNK
  7. FLUOXETINE [Concomitant]
     Dosage: 20 MG, UNK

REACTIONS (1)
  - Sinusitis [Unknown]
